FAERS Safety Report 7462243-2 (Version None)
Quarter: 2011Q2

REPORT INFORMATION
  Report Type: 
  Country: None (occurrence: None)
  Receive Date: 20110506
  Receipt Date: 20110503
  Transmission Date: 20111010
  Serious: Yes (Other)
  Sender: FDA-Public Use
  Company Number: CN-PFIZER INC-2011094462

PATIENT

DRUGS (3)
  1. MEROPENEM [Concomitant]
     Indication: BACTERIAL INFECTION
     Dosage: UNK
  2. VANCOMYCIN [Concomitant]
     Indication: BACTERIAL INFECTION
     Dosage: UNK
  3. ZYVOX [Suspect]
     Indication: BACTERIAL INFECTION
     Dosage: UNK

REACTIONS (2)
  - HYPERSENSITIVITY [None]
  - GASTROINTESTINAL HAEMORRHAGE [None]
